FAERS Safety Report 7740939-2 (Version None)
Quarter: 2011Q3

REPORT INFORMATION
  Report Type: 
  Country: None (occurrence: None)
  Receive Date: 20110909
  Receipt Date: 20110826
  Transmission Date: 20111222
  Serious: Yes (Other)
  Sender: FDA-Public Use
  Company Number: PHHY2011DE77038

PATIENT
  Age: 60 Year
  Sex: Female

DRUGS (1)
  1. DIOVAN [Suspect]
     Dosage: 1 DF, QD, 160 MG
     Route: 048
     Dates: start: 20030101

REACTIONS (2)
  - WEIGHT INCREASED [None]
  - MUSCLE SPASMS [None]
